FAERS Safety Report 8436267-2 (Version None)
Quarter: 2012Q2

REPORT INFORMATION
  Report Type: 
  Country: None (occurrence: None)
  Receive Date: 20120614
  Receipt Date: 20120606
  Transmission Date: 20120825
  Serious: Yes (Hospitalization)
  Sender: FDA-Public Use
  Company Number: US-GLAXOSMITHKLINE-A0978076A

PATIENT
  Age: 65 Year
  Sex: Female
  Weight: 50.3 kg

DRUGS (3)
  1. OFATUMUMAB [Suspect]
     Indication: B-CELL LYMPHOMA
     Dosage: 300MG CYCLIC
     Route: 042
     Dates: start: 20120417
  2. BORTEZOMIB [Suspect]
     Indication: B-CELL LYMPHOMA
     Dosage: 1.6MGM2 CYCLIC
     Route: 042
     Dates: start: 20120417
  3. BENDAMUSTINE [Suspect]
     Indication: B-CELL LYMPHOMA
     Dosage: 90MGM2 CYCLIC
     Route: 042
     Dates: start: 20120417

REACTIONS (1)
  - HYPOXIA [None]
